FAERS Safety Report 10252053 (Version 1)
Quarter: 2014Q2

REPORT INFORMATION
  Report Type: Spontaneous
  Country: US (occurrence: None)
  Receive Date: 20140620
  Receipt Date: 20140620
  Transmission Date: 20141212
  Serious: No
  Sender: FDA-Public Use
  Company Number: None

PATIENT
  Age: 15 Year
  Sex: Female

DRUGS (1)
  1. HUMIRA 40MG/0.8ML [Suspect]
     Indication: CROHN^S DISEASE
     Dosage: 40MG, EVERY OTHER WEEK, SUBCUTANEOUSLY?
     Route: 058
     Dates: start: 20130413

REACTIONS (1)
  - Pruritus generalised [None]
